FAERS Safety Report 5420521-2 (Version None)
Quarter: 2007Q3

REPORT INFORMATION
  Report Type: 
  Country: None (occurrence: None)
  Receive Date: 20070821
  Receipt Date: 20061009
  Transmission Date: 20080115
  Serious: No
  Sender: FDA-Public Use
  Company Number: US-KINGPHARMUSA00001-K200601275

PATIENT

DRUGS (7)
  1. CYTOMEL [Suspect]
     Indication: HYPOTHYROIDISM
     Dosage: 5 MCG, QD
     Route: 048
     Dates: start: 20060401, end: 20061001
  2. WELLBUTRIN [Suspect]
     Indication: HEAD INJURY
  3. PAXIL [Suspect]
     Indication: DEPRESSION
     Dosage: 75 MG, QD
     Route: 048
  4. ATENOLOL [Concomitant]
     Indication: HYPERTENSION
  5. SYNTHROID [Concomitant]
     Indication: HYPOTHYROIDISM
  6. NUTRITIONAL SUPPLEMENTS [Concomitant]
     Indication: MEDICAL DIET
  7. MAGNESIUM SULFATE [Concomitant]
     Indication: MINERAL SUPPLEMENTATION
     Dosage: UNK, UNK

REACTIONS (3)
  - MUSCULOSKELETAL DISCOMFORT [None]
  - MYALGIA [None]
  - PALPITATIONS [None]
